FAERS Safety Report 22833090 (Version 4)
Quarter: 2023Q4

REPORT INFORMATION
  Report Type: Spontaneous
  Country: US (occurrence: US)
  Receive Date: 20230817
  Receipt Date: 20231124
  Transmission Date: 20240109
  Serious: Yes (Death, Other)
  Sender: FDA-Public Use
  Company Number: US-002147023-NVSC2023US178977

PATIENT
  Sex: Male

DRUGS (4)
  1. TAFINLAR [Suspect]
     Active Substance: DABRAFENIB MESYLATE
     Indication: Malignant melanoma
     Dosage: 150 MG, BID (ROUTE: PEG TUBE, ORAL SUSPENSION)
     Route: 065
     Dates: start: 202306
  2. TAFINLAR [Suspect]
     Active Substance: DABRAFENIB MESYLATE
     Indication: Metastases to central nervous system
  3. MEKINIST [Suspect]
     Active Substance: TRAMETINIB DIMETHYL SULFOXIDE
     Indication: Malignant melanoma
     Dosage: 40 ML, QD (ROUTE:PEG TUBE, ORAL SOLUTION)
     Route: 065
     Dates: start: 202306
  4. MEKINIST [Suspect]
     Active Substance: TRAMETINIB DIMETHYL SULFOXIDE
     Indication: Metastases to central nervous system
     Dosage: 2 MG, QD (ROUTE: PEG TUBE)
     Route: 065
     Dates: start: 202306

REACTIONS (5)
  - Death [Fatal]
  - Metastases to central nervous system [Unknown]
  - Malignant melanoma [Unknown]
  - Malignant neoplasm progression [Unknown]
  - Arthralgia [Unknown]
